FAERS Safety Report 10521844 (Version 1)
Quarter: 2014Q4

REPORT INFORMATION
  Report Type: Spontaneous
  Country: US (occurrence: None)
  Receive Date: 20141014
  Receipt Date: 20141014
  Transmission Date: 20150528
  Serious: Yes (Other)
  Sender: FDA-Public Use
  Company Number: QSC-2014-0694

PATIENT
  Age: 78 Year
  Sex: Female
  Weight: 62.1 kg

DRUGS (6)
  1. ATENOLOL (ATENOLOL) [Concomitant]
     Active Substance: ATENOLOL
  2. ATENOLOL (ATENOLOL) [Concomitant]
     Active Substance: ATENOLOL
  3. SYNTHROID [Concomitant]
     Active Substance: LEVOTHYROXINE SODIUM
  4. H.P. ACTHAR [Suspect]
     Active Substance: CORTICOTROPIN
     Indication: RHEUMATOID ARTHRITIS
     Route: 058
     Dates: start: 201307, end: 201409
  5. ATENOLOL (ATENOLOL) [Concomitant]
     Active Substance: ATENOLOL
  6. PREDNISONE (PREDNISONE) [Concomitant]
     Active Substance: PREDNISONE

REACTIONS (10)
  - Dysphonia [None]
  - Blood pressure decreased [None]
  - Pruritus generalised [None]
  - Blood pressure increased [None]
  - Dyspnoea [None]
  - Dizziness [None]
  - Hypoaesthesia [None]
  - Dysphagia [None]
  - Atrial fibrillation [None]
  - Vision blurred [None]

NARRATIVE: CASE EVENT DATE: 2013
